FAERS Safety Report 8903351 (Version 1)
Quarter: 2012Q4

REPORT INFORMATION
  Report Type: 
  Country: US (occurrence: US)
  Receive Date: 20121113
  Receipt Date: 20121113
  Transmission Date: 20130627
  Serious: Yes (Other)
  Sender: FDA-Public Use
  Company Number: US-JNJFOC-20121000115

PATIENT
  Age: 57 Year
  Sex: Female
  Weight: 79.38 kg

DRUGS (13)
  1. LEVAQUIN [Suspect]
     Indication: SINUSITIS
     Route: 048
     Dates: start: 20120619, end: 20120709
  2. IBUPROFEN [Concomitant]
     Indication: NECK PAIN
     Dosage: very occasional, as necessary
     Route: 065
  3. FLEXERIL [Concomitant]
     Indication: NECK PAIN
     Dosage: very occasional, as necessary
     Route: 065
  4. PREDNISONE [Concomitant]
     Indication: SINUSITIS
     Route: 048
     Dates: start: 20120619, end: 201207
  5. INHALER (UNSPECIFIED) [Concomitant]
     Indication: SINUSITIS
     Route: 055
     Dates: start: 20120619
  6. LEXAPRO [Concomitant]
     Indication: ANXIETY
     Dosage: since 8 years
     Route: 065
  7. OMEPRAZOLE [Concomitant]
     Indication: GASTROOESOPHAGEAL REFLUX DISEASE
     Dosage: since 15 years
     Route: 065
  8. METHYLPREDNISOLONE [Concomitant]
     Route: 065
     Dates: end: 20120624
  9. METHYLPREDNISOLONE [Concomitant]
     Route: 065
  10. METHYLPREDNISOLONE [Concomitant]
     Route: 065
  11. METHYLPREDNISOLONE [Concomitant]
     Route: 065
  12. METHYLPREDNISOLONE [Concomitant]
     Route: 065
     Dates: start: 20120619
  13. METHYLPREDNISOLONE [Concomitant]
     Route: 065

REACTIONS (9)
  - Tendon pain [Recovering/Resolving]
  - Fatigue [Recovering/Resolving]
  - Myalgia [Recovering/Resolving]
  - Joint stiffness [Recovering/Resolving]
  - Muscle spasms [Recovering/Resolving]
  - Musculoskeletal stiffness [Recovering/Resolving]
  - Laboratory test abnormal [Recovered/Resolved]
  - Red blood cell sedimentation rate increased [Unknown]
  - C-reactive protein increased [Unknown]
